FAERS Safety Report 4942864-9 (Version None)
Quarter: 2006Q1

REPORT INFORMATION
  Report Type: 
  Country: None (occurrence: None)
  Receive Date: 20060314
  Receipt Date: 20060306
  Transmission Date: 20060701
  Serious: Yes (Other)
  Sender: FDA-Public Use
  Company Number: 2006AP01177

PATIENT
  Age: 68 Year
  Sex: Female

DRUGS (11)
  1. IRESSA [Suspect]
     Indication: LUNG NEOPLASM MALIGNANT
     Route: 048
     Dates: start: 20060207
  2. RINDERON [Concomitant]
     Route: 048
     Dates: start: 20060203, end: 20060206
  3. RINDERON [Concomitant]
     Route: 048
     Dates: start: 20060207, end: 20060210
  4. RINDERON [Concomitant]
     Route: 048
     Dates: start: 20060211, end: 20060214
  5. RINDERON [Concomitant]
     Route: 048
     Dates: start: 20060215, end: 20060218
  6. GASTER D [Concomitant]
     Route: 048
     Dates: start: 20060203, end: 20060218
  7. MYSLEE [Concomitant]
     Route: 048
     Dates: start: 20060206
  8. MAGNESIUM OXIDE [Concomitant]
     Route: 048
     Dates: start: 20060207, end: 20060219
  9. PL [Concomitant]
     Dosage: PAST DRUG HISTORY
  10. DASEN [Concomitant]
     Dosage: PAST DRUG HISTORY
  11. CEFZON [Concomitant]
     Dosage: PAST DRUG HISTORY

REACTIONS (2)
  - DIARRHOEA [None]
  - SEBORRHOEIC DERMATITIS [None]
